FAERS Safety Report 6335198-1 (Version None)
Quarter: 2009Q3

REPORT INFORMATION
  Report Type: 
  Country: None (occurrence: None)
  Receive Date: 20090828
  Receipt Date: 20090828
  Transmission Date: 20100115
  Serious: Yes (Other)
  Sender: FDA-Public Use
  Company Number: None

PATIENT
  Sex: Female

DRUGS (1)
  1. XALATAN [Suspect]
     Indication: GLAUCOMA
     Dosage: INSTILL ONE DROP IN BOTH EYES AT BEDTIME 0.2 ML BOTTLE I BE USING WELL OVER DATE START DROP ON DATE

REACTIONS (6)
  - BLINDNESS [None]
  - CONFUSIONAL STATE [None]
  - DIZZINESS [None]
  - EYE DISORDER [None]
  - HEADACHE [None]
  - JUDGEMENT IMPAIRED [None]
